FAERS Safety Report 21778954 (Version 2)
Quarter: 2023Q1

REPORT INFORMATION
  Report Type: Report from Study
  Country: US (occurrence: US)
  Receive Date: 20221226
  Receipt Date: 20230118
  Transmission Date: 20230417
  Serious: Yes (Life-Threatening)
  Sender: FDA-Public Use
  Company Number: US-BAYER-2022A174544

PATIENT
  Age: 70 Year
  Sex: Male
  Weight: 56.7 kg

DRUGS (3)
  1. COPANLISIB [Suspect]
     Active Substance: COPANLISIB
     Indication: Connective tissue neoplasm
     Dosage: UNK
     Dates: start: 20220630, end: 20221013
  2. NIVOLUMAB [Suspect]
     Active Substance: NIVOLUMAB
     Indication: Soft tissue neoplasm
     Dosage: UNK
     Dates: start: 20220630
  3. NIVOLUMAB [Suspect]
     Active Substance: NIVOLUMAB
     Indication: Soft tissue neoplasm
     Dosage: UNK
     Dates: start: 20220728, end: 20220929

REACTIONS (1)
  - Stevens-Johnson syndrome [Not Recovered/Not Resolved]

NARRATIVE: CASE EVENT DATE: 20221027
